FAERS Safety Report 9568449 (Version 2)
Quarter: 2013Q3

REPORT INFORMATION
  Report Type: Spontaneous
  Country: US (occurrence: US)
  Receive Date: 20130930
  Receipt Date: 20130930
  Transmission Date: 20140515
  Serious: Yes (Other)
  Sender: FDA-Public Use
  Company Number: US-AMGEN-USASP2013046266

PATIENT
  Age: 61 Year
  Sex: Female
  Weight: 88.44 kg

DRUGS (10)
  1. ENBREL [Suspect]
     Indication: RHEUMATOID ARTHRITIS
     Dosage: 50 MG/ML, QWK
     Route: 058
     Dates: start: 20130329, end: 20130630
  2. METHOTREXATE [Concomitant]
     Dosage: 2.5 MG, 8 TABLETS WEEKLY
     Dates: start: 201302
  3. METHOTREXATE [Concomitant]
     Dosage: 20 MG, UNK
  4. FOLIC ACID [Concomitant]
     Dosage: 1 MG, UNK
  5. COUMADIN                           /00014802/ [Concomitant]
     Dosage: 2.5 MG, UNK
  6. LEXAPRO [Concomitant]
     Dosage: 10 MG, UNK
  7. TRAMADOL HCL [Concomitant]
     Dosage: 50 MG, UNK
  8. TYROSINE [Concomitant]
     Dosage: 500 MG, UNK
  9. XANAX [Concomitant]
     Dosage: 1 MG, UNK
  10. VITAMIN D                          /00107901/ [Concomitant]
     Dosage: 1000 UNIT, UNK

REACTIONS (9)
  - Cellulitis [Unknown]
  - Malaise [Not Recovered/Not Resolved]
  - Ulcer [Not Recovered/Not Resolved]
  - Joint swelling [Not Recovered/Not Resolved]
  - Myalgia [Not Recovered/Not Resolved]
  - Gait disturbance [Not Recovered/Not Resolved]
  - Muscle spasms [Not Recovered/Not Resolved]
  - Influenza like illness [Unknown]
  - Fatigue [Unknown]
